FAERS Safety Report 9886707 (Version 1)
Quarter: 2014Q1

REPORT INFORMATION
  Report Type: Report from Study
  Country: NZ (occurrence: NZ)
  Receive Date: 20140210
  Receipt Date: 20140210
  Transmission Date: 20141002
  Serious: Yes (Hospitalization)
  Sender: FDA-Public Use
  Company Number: PHHY2014NZ016205

PATIENT
  Sex: Male

DRUGS (3)
  1. CLOZARIL [Suspect]
     Dosage: UNK UKN, UNK
     Dates: start: 20091121
  2. CLOZARIL [Suspect]
     Dosage: UNK UKN, UNK
  3. CLOZARIL [Suspect]
     Dosage: WEEKLY
     Route: 030
     Dates: start: 20140210

REACTIONS (2)
  - Mental disorder [Unknown]
  - Overdose [Unknown]
